FAERS Safety Report 7095939-5 (Version None)
Quarter: 2010Q4

REPORT INFORMATION
  Report Type: 
  Country: None (occurrence: None)
  Receive Date: 20101109
  Receipt Date: 20101109
  Transmission Date: 20110411
  Serious: Yes (Other)
  Sender: FDA-Public Use
  Company Number: None

PATIENT
  Age: 35 Year
  Sex: Female
  Weight: 83.9154 kg

DRUGS (2)
  1. AVELOX [Suspect]
     Indication: COUGH
     Dosage: 1 1 PO
     Route: 048
     Dates: start: 20101106, end: 20101106
  2. AVELOX [Suspect]
     Indication: INNER EAR DISORDER
     Dosage: 1 1 PO
     Route: 048
     Dates: start: 20101106, end: 20101106

REACTIONS (7)
  - ABDOMINAL PAIN UPPER [None]
  - ARTHRALGIA [None]
  - CONFUSIONAL STATE [None]
  - DISTURBANCE IN ATTENTION [None]
  - DIZZINESS [None]
  - FATIGUE [None]
  - PARAESTHESIA [None]
